FAERS Safety Report 6149635-9 (Version None)
Quarter: 2009Q2

REPORT INFORMATION
  Report Type: 
  Country: None (occurrence: None)
  Receive Date: 20090409
  Receipt Date: 20090401
  Transmission Date: 20091009
  Serious: Yes (Hospitalization)
  Sender: FDA-Public Use
  Company Number: GR-BAXTER-2008BH003302

PATIENT
  Age: 66 Year
  Sex: Female

DRUGS (18)
  1. CYCLOPHOSPHAMIDE [Suspect]
     Indication: BREAST CANCER
     Route: 042
     Dates: start: 20070502, end: 20070502
  2. CYCLOPHOSPHAMIDE [Suspect]
     Route: 042
     Dates: start: 20070516, end: 20070516
  3. CYCLOPHOSPHAMIDE [Suspect]
     Route: 042
     Dates: start: 20070606, end: 20070606
  4. METHOTREXATE [Suspect]
     Indication: BREAST CANCER
     Route: 042
     Dates: start: 20070502, end: 20070502
  5. METHOTREXATE [Suspect]
     Route: 042
     Dates: start: 20070516, end: 20070516
  6. METHOTREXATE [Suspect]
     Route: 042
     Dates: start: 20070606, end: 20070606
  7. FLUOROURACIL CAP [Suspect]
     Indication: BREAST CANCER
     Route: 042
     Dates: start: 20070502, end: 20070502
  8. FLUOROURACIL CAP [Suspect]
     Route: 042
     Dates: start: 20070516, end: 20070516
  9. FLUOROURACIL CAP [Suspect]
     Route: 042
     Dates: start: 20070606, end: 20070606
  10. TAXOL [Suspect]
     Indication: BREAST CANCER
     Route: 065
     Dates: start: 20070627, end: 20070822
  11. ZOFRON [Concomitant]
     Indication: PROPHYLAXIS
     Route: 065
  12. ZANTAC [Concomitant]
     Indication: PROPHYLAXIS
     Route: 065
  13. FENISTIL [Concomitant]
     Indication: PROPHYLAXIS
     Route: 065
  14. DEXAMETHASONE 4MG TAB [Concomitant]
     Indication: PROPHYLAXIS
     Route: 065
  15. NEULASTA [Concomitant]
     Indication: DRUG USE FOR UNKNOWN INDICATION
     Route: 065
  16. SELECTOL [Concomitant]
     Indication: HYPERTENSION
     Route: 048
  17. LOGIMAX [Concomitant]
     Indication: HYPERTENSION
     Route: 048
  18. ZOCOR [Concomitant]
     Indication: HYPERGLYCAEMIA
     Route: 048

REACTIONS (1)
  - VENOUS THROMBOSIS [None]
